FAERS Safety Report 10092071 (Version 2)
Quarter: 2014Q2

REPORT INFORMATION
  Report Type: Spontaneous
  Country: US (occurrence: US)
  Receive Date: 20140421
  Receipt Date: 20140421
  Transmission Date: 20141212
  Serious: No
  Sender: FDA-Public Use
  Company Number: US-GILEAD-2013-0070305

PATIENT
  Age: 64 Year
  Sex: Female

DRUGS (13)
  1. LETAIRIS [Suspect]
     Indication: PULMONARY ARTERIAL HYPERTENSION
     Dosage: 5 MG, QD
     Route: 048
     Dates: start: 20130116
  2. HYZAAR DS [Concomitant]
     Indication: HYPERTENSION
  3. HYZAAR DS [Concomitant]
     Indication: FLUID RETENTION
  4. METOPROLOL [Concomitant]
     Indication: HYPERTENSION
  5. METOPROLOL [Concomitant]
     Indication: CARDIAC DISORDER
  6. METOPROLOL [Concomitant]
     Indication: HEART RATE IRREGULAR
  7. LEVOTHYROXINE [Concomitant]
     Indication: HYPOTHYROIDISM
  8. NIFEDIAC CC [Concomitant]
  9. VITAMIN D NOS [Concomitant]
  10. OMNITROPE [Concomitant]
  11. PREVACID [Concomitant]
  12. METFORMIN [Concomitant]
  13. PROPRANOLOL [Concomitant]

REACTIONS (1)
  - Atrial fibrillation [Unknown]
